FAERS Safety Report 18266540 (Version 2)
Quarter: 2020Q3

REPORT INFORMATION
  Report Type: Spontaneous
  Country: DK (occurrence: DK)
  Receive Date: 20200915
  Receipt Date: 20200916
  Transmission Date: 20201103
  Serious: Yes (Disabling)
  Sender: FDA-Public Use
  Company Number: NVSC2020DK247882

PATIENT
  Age: 35 Year
  Sex: Male

DRUGS (1)
  1. PREDNISOLONE. [Suspect]
     Active Substance: PREDNISOLONE
     Indication: IMMUNE THROMBOCYTOPENIA
     Dosage: 100 MG (DOSAGE: 25?100 MG)
     Route: 048
     Dates: start: 201510

REACTIONS (3)
  - Arthralgia [Unknown]
  - Arthralgia [Unknown]
  - Osteonecrosis [Recovered/Resolved]

NARRATIVE: CASE EVENT DATE: 2018
